FAERS Safety Report 21385427 (Version 2)
Quarter: 2022Q4

REPORT INFORMATION
  Report Type: Spontaneous
  Country: US (occurrence: US)
  Receive Date: 20220928
  Receipt Date: 20221017
  Transmission Date: 20230113
  Serious: Yes (Other)
  Sender: FDA-Public Use
  Company Number: US-PFIZER INC-202201188500

PATIENT
  Age: 76 Year
  Sex: Female
  Weight: 57.143 kg

DRUGS (1)
  1. PAXLOVID [Suspect]
     Active Substance: NIRMATRELVIR\RITONAVIR
     Indication: COVID-19 treatment
     Dosage: [PF-07321332 300 MG]/[RITONAVIR 100 MG]; 2X/DAY (3 PILLS 2 TIMES A DAY)
     Dates: start: 20220915, end: 20220920

REACTIONS (5)
  - Deafness [Unknown]
  - Ear discomfort [Unknown]
  - Dysgeusia [Recovered/Resolved]
  - COVID-19 [Not Recovered/Not Resolved]
  - Disease recurrence [Not Recovered/Not Resolved]

NARRATIVE: CASE EVENT DATE: 20220916
